FAERS Safety Report 9404456 (Version 2)
Quarter: 2013Q3

REPORT INFORMATION
  Report Type: Spontaneous
  Country: US (occurrence: US)
  Receive Date: 20130717
  Receipt Date: 20130819
  Transmission Date: 20140515
  Serious: No
  Sender: FDA-Public Use
  Company Number: US-PFIZER INC-2013207467

PATIENT
  Age: 54 Year
  Sex: Female
  Weight: 99.77 kg

DRUGS (1)
  1. FLAGYL [Suspect]

REACTIONS (1)
  - Drug hypersensitivity [Unknown]
